FAERS Safety Report 9097940 (Version 1)
Quarter: 2013Q1

REPORT INFORMATION
  Report Type: Spontaneous
  Country: US (occurrence: US)
  Receive Date: 20130212
  Receipt Date: 20130212
  Transmission Date: 20140127
  Serious: No
  Sender: FDA-Public Use
  Company Number: US-009507513-1302USA004471

PATIENT
  Sex: 0

DRUGS (1)
  1. MIRALAX [Suspect]
     Indication: PRODUCT USED FOR UNKNOWN INDICATION
     Dosage: 8.4 G, ONCE
     Route: 048
     Dates: start: 20130207

REACTIONS (2)
  - Vomiting [Unknown]
  - Underdose [Unknown]
